FAERS Safety Report 9541395 (Version 1)
Quarter: 2013Q3

REPORT INFORMATION
  Report Type: Spontaneous
  Country: US (occurrence: None)
  Receive Date: 20130919
  Receipt Date: 20130919
  Transmission Date: 20140515
  Serious: No
  Sender: FDA-Public Use
  Company Number: None

PATIENT
  Age: 43 Year
  Sex: Female

DRUGS (2)
  1. QUETIAPINE [Suspect]
     Indication: SCHIZOAFFECTIVE DISORDER
     Dosage: 400 MG HS ORAL?QHS
     Route: 048
  2. QUETIAPINE [Suspect]
     Indication: SLEEP DISORDER
     Dosage: 400 MG HS ORAL?QHS
     Route: 048

REACTIONS (3)
  - Flushing [None]
  - Dyspnoea [None]
  - Heart rate increased [None]
